FAERS Safety Report 19190349 (Version 2)
Quarter: 2021Q2

REPORT INFORMATION
  Report Type: Spontaneous
  Country: US (occurrence: US)
  Receive Date: 20210428
  Receipt Date: 20210527
  Transmission Date: 20210717
  Serious: No
  Sender: FDA-Public Use
  Company Number: US-BRISTOL-MYERS SQUIBB COMPANY-BMS-2021-033914

PATIENT
  Age: 91 Year
  Sex: Female

DRUGS (6)
  1. ELIQUIS [Suspect]
     Active Substance: APIXABAN
     Indication: CEREBROVASCULAR ACCIDENT PROPHYLAXIS
     Dosage: 2.5 MILLIGRAM, BID
     Route: 048
     Dates: start: 2018
  2. FLUTICASONE + SALMETEROL [Concomitant]
     Active Substance: FLUTICASONE FUROATE\SALMETEROL XINAFOATE
     Indication: HEART RATE ABNORMAL
     Dosage: UNK, BID
     Dates: start: 2010
  3. VERAPAMIL [Concomitant]
     Active Substance: VERAPAMIL HYDROCHLORIDE
     Indication: BLOOD PRESSURE ABNORMAL
     Dosage: 240 MILLIGRAM, QD
     Route: 048
     Dates: start: 2000
  4. LOSARTAN. [Concomitant]
     Active Substance: LOSARTAN
     Indication: BLOOD PRESSURE ABNORMAL
     Dosage: 25 MILLIGRAM
     Route: 048
     Dates: start: 2000
  5. COVID?19 VACCINE NOS. [Concomitant]
     Active Substance: COVID-19 VACCINE NOS
     Indication: COVID-19 IMMUNISATION
     Dosage: UNK
     Route: 065
     Dates: start: 20210101
  6. AMIODARONE [Concomitant]
     Active Substance: AMIODARONE
     Indication: HEART RATE ABNORMAL
     Dosage: HALF IN THE MORNING
     Route: 065
     Dates: start: 2017

REACTIONS (1)
  - Urinary tract infection [Recovered/Resolved]

NARRATIVE: CASE EVENT DATE: 20210202
